FAERS Safety Report 24258006 (Version 2)
Quarter: 2025Q2

REPORT INFORMATION
  Report Type: Spontaneous
  Country: CN (occurrence: CN)
  Receive Date: 20240828
  Receipt Date: 20250608
  Transmission Date: 20250716
  Serious: Yes (Hospitalization)
  Sender: COHERUS
  Company Number: CN-SHANGHAI JUNSHI BIOSCIENCES CO., LTD.-CN2024011101

PATIENT

DRUGS (9)
  1. TORIPALIMAB [Suspect]
     Active Substance: TORIPALIMAB
     Indication: Malignant melanoma of sites other than skin
     Dosage: 160 MG, Q2W
     Route: 041
     Dates: start: 20231020, end: 20240126
  2. TORIPALIMAB [Suspect]
     Active Substance: TORIPALIMAB
     Indication: Meningioma
  3. TORIPALIMAB [Suspect]
     Active Substance: TORIPALIMAB
     Indication: Gastrointestinal stromal tumour
  4. TEMOZOLOMIDE [Suspect]
     Active Substance: TEMOZOLOMIDE
     Indication: Malignant melanoma of sites other than skin
     Dosage: 300 MG(D1-D5), QD, EVERY 4 WEEKS AS A CYCLE
     Route: 048
     Dates: start: 20231020, end: 20240129
  5. TEMOZOLOMIDE [Suspect]
     Active Substance: TEMOZOLOMIDE
     Indication: Meningioma
  6. TEMOZOLOMIDE [Suspect]
     Active Substance: TEMOZOLOMIDE
     Indication: Gastrointestinal stromal tumour
  7. LENVATINIB MESYLATE [Suspect]
     Active Substance: LENVATINIB MESYLATE
     Indication: Malignant melanoma of sites other than skin
     Dosage: 8 MG, QD
     Route: 048
     Dates: start: 20231020, end: 20240129
  8. LENVATINIB MESYLATE [Suspect]
     Active Substance: LENVATINIB MESYLATE
     Indication: Meningioma
  9. LENVATINIB MESYLATE [Suspect]
     Active Substance: LENVATINIB MESYLATE
     Indication: Gastrointestinal stromal tumour

REACTIONS (5)
  - Respiratory failure [Recovering/Resolving]
  - Proteinuria [Recovering/Resolving]
  - Hypoproteinaemia [Recovering/Resolving]
  - Pericardial effusion [Recovering/Resolving]
  - Pleural effusion [Recovering/Resolving]

NARRATIVE: CASE EVENT DATE: 20240128
